FAERS Safety Report 9660787 (Version 4)
Quarter: 2013Q4

REPORT INFORMATION
  Report Type: Report from Study
  Country: US (occurrence: US)
  Receive Date: 20131031
  Receipt Date: 20131202
  Transmission Date: 20140711
  Serious: Yes (Hospitalization)
  Sender: FDA-Public Use
  Company Number: US-IPSEN BIOPHARMACEUTICALS, INC.-2013-4710

PATIENT
  Age: 54 Year
  Sex: Female
  Weight: 63.9 kg

DRUGS (3)
  1. SOMATULINE DEPOT INJECTION (90MG) [Suspect]
     Indication: ACROMEGALY
     Dosage: 90 MG
     Route: 058
     Dates: start: 20131004
  2. BRILINTA [Concomitant]
     Indication: PRODUCT USED FOR UNKNOWN INDICATION
     Route: 065
     Dates: start: 201310
  3. BABY ASPIRIN [Concomitant]
     Indication: PRODUCT USED FOR UNKNOWN INDICATION
     Route: 065
     Dates: start: 201310

REACTIONS (5)
  - Myocardial infarction [Unknown]
  - Injection site haemorrhage [Recovered/Resolved]
  - Syncope [Recovered/Resolved]
  - Amnesia [Recovered/Resolved]
  - Infusion site bruising [Recovered/Resolved]
